FAERS Safety Report 6921817-5 (Version None)
Quarter: 2010Q3

REPORT INFORMATION
  Report Type: 
  Country: None (occurrence: None)
  Receive Date: 20100812
  Receipt Date: 20100803
  Transmission Date: 20110219
  Serious: Yes (Other)
  Sender: FDA-Public Use
  Company Number: CA-PFIZER INC-2010097428

PATIENT
  Age: 38 Year
  Sex: Male

DRUGS (5)
  1. LIPITOR [Suspect]
     Indication: DIABETES PROPHYLAXIS
     Dosage: 20 MG, UNK
     Dates: start: 20090101, end: 20100101
  2. LIPITOR [Suspect]
     Dosage: 10 MG, UNK
     Dates: start: 20080101, end: 20090101
  3. ALTACE [Concomitant]
     Dosage: UNK
  4. LANTUS [Concomitant]
     Dosage: UNK
  5. NOVORAPID [Concomitant]
     Dosage: UNK

REACTIONS (2)
  - GROIN PAIN [None]
  - PAIN IN EXTREMITY [None]
